FAERS Safety Report 15105087 (Version 3)
Quarter: 2018Q4

REPORT INFORMATION
  Report Type: Spontaneous
  Country: JP (occurrence: JP)
  Receive Date: 20180703
  Receipt Date: 20181010
  Transmission Date: 20190204
  Serious: No
  Sender: FDA-Public Use
  Company Number: JP-BRISTOL-MYERS SQUIBB COMPANY-BMS-2018-059641

PATIENT
  Age: 8 Decade
  Sex: Female

DRUGS (2)
  1. EMPLICITI [Suspect]
     Active Substance: ELOTUZUMAB
     Indication: PLASMA CELL MYELOMA
     Dosage: 400 MG, QWK
     Route: 041
     Dates: start: 20180515
  2. REVLIMID [Suspect]
     Active Substance: LENALIDOMIDE
     Indication: PRODUCT USED FOR UNKNOWN INDICATION
     Dosage: 5 MG, QD
     Route: 048

REACTIONS (1)
  - Diarrhoea [Recovered/Resolved]

NARRATIVE: CASE EVENT DATE: 20180601
